FAERS Safety Report 4715258-9 (Version None)
Quarter: 2005Q3

REPORT INFORMATION
  Report Type: 
  Country: None (occurrence: None)
  Receive Date: 20050715
  Receipt Date: 20050713
  Transmission Date: 20060218
  Serious: Yes (Death, Other)
  Sender: FDA-Public Use
  Company Number: JP-SANOFI-SYNTHELABO-F01200501239

PATIENT
  Sex: Female
  Weight: 44 kg

DRUGS (10)
  1. OXALIPLATIN [Suspect]
     Indication: COLON CANCER
     Dosage: 100MG/BODY=75.2MG/M2 ON DAY 1
     Route: 042
     Dates: start: 20050530, end: 20050530
  2. OXALIPLATIN [Suspect]
     Dosage: 100MG/BODY=75.2MG/M2 ON DAY 1
     Route: 042
     Dates: start: 20050620, end: 20050620
  3. FLUOROURACIL [Suspect]
     Indication: COLON CANCER
     Dosage: 400 MG/M2 IV BOLUS AND 600 MG/M2 IV 22 HOURS CONTINUOUS INFUSION, Q2W
     Route: 042
     Dates: start: 20050530, end: 20050531
  4. FLUOROURACIL [Suspect]
     Dosage: 400 MG/M2 IV BOLUS AND 600 MG/M2 IV 22 HOURS CONTINUOUS INFUSION, Q2W
     Route: 042
     Dates: start: 20050620, end: 20050621
  5. CALCIUM LEVOFOLINATE [Suspect]
     Indication: COLON CANCER
     Dosage: 130MG/BODY=97.7MG/M2 AS INFUSION ON DAYS 1 AND 2
     Route: 042
     Dates: start: 20050530, end: 20050531
  6. CALCIUM LEVOFOLINATE [Suspect]
     Dosage: 130MG/BODY=97.7MG/M2 AS INFUSION ON DAYS 1 AND 2
     Route: 042
     Dates: start: 20050620, end: 20050621
  7. INSULIN [Concomitant]
     Indication: HYPERGLYCAEMIA
     Dates: start: 20050623
  8. LENOGRASTIM [Concomitant]
     Dates: start: 20050628, end: 20050701
  9. UNASYN [Concomitant]
     Indication: NEUTROPENIA
     Dosage: 3G DR
     Dates: start: 20050628, end: 20050701
  10. CONCENTRATED HUMAN BLOOD PLATELET [Concomitant]
     Indication: THROMBOCYTOPENIA
     Dosage: 20DF
     Dates: start: 20050630, end: 20050701

REACTIONS (12)
  - BLOOD PRESSURE DECREASED [None]
  - DIARRHOEA [None]
  - DISSEMINATED INTRAVASCULAR COAGULATION [None]
  - DYSPNOEA [None]
  - HYPERGLYCAEMIA [None]
  - HYPOXIA [None]
  - LEUKOPENIA [None]
  - MALAISE [None]
  - NEUTROPENIA [None]
  - PNEUMONIA [None]
  - TACHYCARDIA [None]
  - THROMBOCYTOPENIA [None]
